FAERS Safety Report 23475931 (Version 1)
Quarter: 2024Q1

REPORT INFORMATION
  Report Type: Report from Study
  Country: US (occurrence: US)
  Receive Date: 20240204
  Receipt Date: 20240204
  Transmission Date: 20240409
  Serious: No
  Sender: FDA-Public Use
  Company Number: US-EXELIXIS-CABO-23061372

PATIENT
  Age: 78 Year
  Sex: Male

DRUGS (22)
  1. CABOMETYX [Suspect]
     Active Substance: CABOZANTINIB S-MALATE
     Indication: Renal cell carcinoma
     Dosage: 20 MG, QD
     Dates: start: 20230209
  2. CABOMETYX [Suspect]
     Active Substance: CABOZANTINIB S-MALATE
     Indication: Skin cancer
     Dosage: 20 MG, QD ON MONDAY, WEDNESDAY AND FRIDAY
     Dates: start: 20230228
  3. MIRALAX [Concomitant]
     Active Substance: POLYETHYLENE GLYCOL 3350
  4. PRILOSEC [Concomitant]
     Active Substance: OMEPRAZOLE MAGNESIUM
  5. EFFEXOR [Concomitant]
     Active Substance: VENLAFAXINE HYDROCHLORIDE
  6. XARELTO [Concomitant]
     Active Substance: RIVAROXABAN
  7. TROSPIUM [Concomitant]
     Active Substance: TROSPIUM
  8. CLONAZEPAM [Concomitant]
     Active Substance: CLONAZEPAM
  9. CARVEDILOL [Concomitant]
     Active Substance: CARVEDILOL
  10. MEMANTINE [Concomitant]
     Active Substance: MEMANTINE
  11. ABILIFY [Concomitant]
     Active Substance: ARIPIPRAZOLE
  12. FINASTERIDE [Concomitant]
     Active Substance: FINASTERIDE
  13. ATORVASTATIN [Concomitant]
     Active Substance: ATORVASTATIN
  14. DONEPEZIL [Concomitant]
     Active Substance: DONEPEZIL
  15. SEROQUEL [Concomitant]
     Active Substance: QUETIAPINE FUMARATE
  16. ZYRTEC [Concomitant]
     Active Substance: CETIRIZINE HYDROCHLORIDE
  17. VITAMINS [Concomitant]
     Active Substance: VITAMINS
  18. ALIGN [Concomitant]
     Active Substance: BIFIDOBACTERIUM LONGUM SUBSP. INFANTIS
  19. BACTRIM [Concomitant]
     Active Substance: SULFAMETHOXAZOLE\TRIMETHOPRIM
  20. POTASSIUM [Concomitant]
     Active Substance: POTASSIUM
  21. FLEET ENEMA [Concomitant]
     Active Substance: SODIUM PHOSPHATE, DIBASIC\SODIUM PHOSPHATE, MONOBASIC
  22. BISACODYL [Concomitant]
     Active Substance: BISACODYL

REACTIONS (7)
  - Malaise [Unknown]
  - Ageusia [Not Recovered/Not Resolved]
  - Depression [Recovered/Resolved]
  - Abdominal pain upper [Recovered/Resolved]
  - Constipation [Recovered/Resolved]
  - Decreased appetite [Not Recovered/Not Resolved]
  - Inappropriate schedule of product administration [Unknown]

NARRATIVE: CASE EVENT DATE: 20230228
